FAERS Safety Report 10945670 (Version 3)
Quarter: 2015Q3

REPORT INFORMATION
  Report Type: Spontaneous
  Country: US (occurrence: US)
  Receive Date: 20150323
  Receipt Date: 20150720
  Transmission Date: 20151125
  Serious: Yes (Life-Threatening, Hospitalization, Other)
  Sender: FDA-Public Use
  Company Number: US-BAYER-2015-038117

PATIENT
  Age: 43 Year
  Sex: Female
  Weight: 82 kg

DRUGS (1)
  1. MIRENA [Suspect]
     Active Substance: LEVONORGESTREL
     Indication: CONTRACEPTION
     Dosage: 20 MCG/24HR, CONT
     Route: 015
     Dates: start: 20050413, end: 20140103

REACTIONS (9)
  - Portal vein thrombosis [None]
  - Device use error [None]
  - Injury [None]
  - Pain [None]
  - Abdominal pain [None]
  - Uterine perforation [None]
  - General physical health deterioration [None]
  - Infection [None]
  - Device issue [None]

NARRATIVE: CASE EVENT DATE: 2006
